FAERS Safety Report 5305613-0 (Version None)
Quarter: 2007Q2

REPORT INFORMATION
  Report Type: 
  Country: None (occurrence: None)
  Receive Date: 20070416
  Receipt Date: 20070404
  Transmission Date: 20071010
  Serious: Yes (Death, Life-Threatening, Hospitalization)
  Sender: FDA-Public Use
  Company Number: GXKR2007JP02717

PATIENT
  Age: 76 Year
  Sex: Male

DRUGS (2)
  1. AMIODARONE HCL [Suspect]
     Indication: VENTRICULAR TACHYCARDIA
     Dosage: 200 MG/DAY
     Dates: start: 20041101, end: 20050101
  2. DOBUTAMINE (DOBUTAMINE) UNKNOWN [Concomitant]

REACTIONS (4)
  - HAEMODYNAMIC INSTABILITY [None]
  - INTERSTITIAL LUNG DISEASE [None]
  - RENAL FAILURE [None]
  - RESPIRATORY FAILURE [None]
